FAERS Safety Report 13521827 (Version 1)
Quarter: 2017Q2

REPORT INFORMATION
  Report Type: Spontaneous
  Country: US (occurrence: US)
  Receive Date: 20170506
  Receipt Date: 20170506
  Transmission Date: 20170830
  Serious: Yes (Disabling)
  Sender: FDA-Public Use
  Company Number: None

PATIENT
  Age: 43 Year
  Sex: Female
  Weight: 77.4 kg

DRUGS (4)
  1. LISINIPRIL [Concomitant]
  2. LEVOFLOXACIN. [Suspect]
     Active Substance: LEVOFLOXACIN
     Indication: LOWER RESPIRATORY TRACT INFECTION
     Dosage: ?          QUANTITY:7 TABLET(S);?
     Route: 048
     Dates: start: 20170410, end: 20170415
  3. VITAMIN C [Concomitant]
     Active Substance: ASCORBIC ACID
  4. PRENATAL PILLS [Concomitant]

REACTIONS (5)
  - Paraesthesia [None]
  - Musculoskeletal stiffness [None]
  - Gait disturbance [None]
  - Arthralgia [None]
  - Arthropathy [None]

NARRATIVE: CASE EVENT DATE: 20170410
